FAERS Safety Report 13015261 (Version 1)
Quarter: 2016Q4

REPORT INFORMATION
  Report Type: Spontaneous
  Country: US (occurrence: US)
  Receive Date: 20161211
  Receipt Date: 20161211
  Transmission Date: 20170207
  Serious: No
  Sender: FDA-Public Use
  Company Number: US-BIOGEN-2016BI00327024

PATIENT
  Sex: Female

DRUGS (1)
  1. TECFIDERA [Suspect]
     Active Substance: DIMETHYL FUMARATE
     Indication: MULTIPLE SCLEROSIS
     Dosage: MAINTENANCE DOSE
     Route: 048
     Dates: start: 20130918

REACTIONS (6)
  - Migraine with aura [Unknown]
  - Fatigue [Unknown]
  - Trigeminal neuralgia [Unknown]
  - Facial pain [Unknown]
  - Eye pain [Unknown]
  - Migraine [Unknown]
